FAERS Safety Report 23444156 (Version 1)
Quarter: 2024Q1

REPORT INFORMATION
  Report Type: Other
  Country: FR (occurrence: FR)
  Receive Date: 20240125
  Receipt Date: 20240125
  Transmission Date: 20240410
  Serious: Yes (Death, Other)
  Sender: FDA-Public Use
  Company Number: FR-Merck Healthcare KGaA-9375269

PATIENT
  Age: 65 Year
  Sex: Female

DRUGS (2)
  1. METFORMIN [Suspect]
     Active Substance: METFORMIN HYDROCHLORIDE
     Indication: Type 2 diabetes mellitus
  2. DAPAGLIFLOZIN [Concomitant]
     Active Substance: DAPAGLIFLOZIN
     Indication: Type 2 diabetes mellitus

REACTIONS (6)
  - Asphyxia [Fatal]
  - Lactic acidosis [Fatal]
  - Overdose [Fatal]
  - Gastrointestinal inflammation [Unknown]
  - Dehydration [Unknown]
  - Post procedural complication [Unknown]
